FAERS Safety Report 5918050-2 (Version None)
Quarter: 2008Q4

REPORT INFORMATION
  Report Type: 
  Country: None (occurrence: None)
  Receive Date: 20081014
  Receipt Date: 20081002
  Transmission Date: 20090506
  Serious: Yes (Life-Threatening, Hospitalization, Other)
  Sender: FDA-Public Use
  Company Number: US-PFIZER INC-2008083742

PATIENT
  Sex: Male

DRUGS (3)
  1. DILANTIN [Suspect]
     Indication: EPILEPSY
  2. PRIMIDONE [Concomitant]
  3. PHENOBARBITAL [Concomitant]

REACTIONS (13)
  - AMNESIA [None]
  - BLOOD FOLATE DECREASED [None]
  - CAROTID ARTERY OCCLUSION [None]
  - CEREBRAL DISORDER [None]
  - CEREBROVASCULAR ACCIDENT [None]
  - CHOLECYSTECTOMY [None]
  - FATIGUE [None]
  - GINGIVAL ULCERATION [None]
  - MOUTH ULCERATION [None]
  - MYOCARDIAL INFARCTION [None]
  - SPLENOMEGALY [None]
  - WEIGHT DECREASED [None]
  - WHITE BLOOD CELL COUNT DECREASED [None]
